FAERS Safety Report 16283487 (Version 1)
Quarter: 2019Q2

REPORT INFORMATION
  Report Type: Spontaneous
  Country: US (occurrence: US)
  Receive Date: 20190507
  Receipt Date: 20190507
  Transmission Date: 20190711
  Serious: Yes (Other)
  Sender: FDA-Public Use
  Company Number: US-SA-2019SA118090

PATIENT
  Age: 53 Year
  Sex: Female
  Weight: 95.3 kg

DRUGS (5)
  1. POTASSIUM [Concomitant]
     Active Substance: POTASSIUM
     Dosage: UNK
     Dates: start: 1997
  2. TAXOTERE [Suspect]
     Active Substance: DOCETAXEL
     Indication: BREAST CANCER FEMALE
     Dosage: 20MG-150MG, Q3W
     Route: 042
     Dates: start: 20111222, end: 20111222
  3. TAXOTERE [Suspect]
     Active Substance: DOCETAXEL
     Dosage: 20MG-150MG, Q3W
     Route: 042
     Dates: start: 20120405, end: 20120405
  4. HERCEPTIN [Concomitant]
     Active Substance: TRASTUZUMAB
  5. PARAPLATIN [Concomitant]
     Active Substance: CARBOPLATIN
     Dosage: UNK

REACTIONS (1)
  - Alopecia [Recovering/Resolving]

NARRATIVE: CASE EVENT DATE: 20120517
